FAERS Safety Report 5913432-7 (Version None)
Quarter: 2008Q4

REPORT INFORMATION
  Report Type: 
  Country: None (occurrence: None)
  Receive Date: 20081008
  Receipt Date: 20081008
  Transmission Date: 20090506
  Serious: Yes (Hospitalization)
  Sender: FDA-Public Use
  Company Number: None

PATIENT
  Age: 62 Year
  Sex: Male

DRUGS (2)
  1. CISPLATIN [Suspect]
     Indication: OESOPHAGEAL CARCINOMA
     Dosage: 54 MG IV
     Route: 042
     Dates: start: 20080626, end: 20080626
  2. IRINOTECAN HYDROCHLORIDE [Suspect]
     Indication: OESOPHAGEAL CARCINOMA
     Dosage: 120 MG IV
     Route: 042
     Dates: start: 20080626, end: 20080626

REACTIONS (1)
  - FEBRILE NEUTROPENIA [None]
